FAERS Safety Report 8805937 (Version 1)
Quarter: 2012Q4

REPORT INFORMATION
  Report Type: Spontaneous
  Country: JP (occurrence: None)
  Receive Date: 20120918
  Receipt Date: 20120918
  Transmission Date: 20130627
  Serious: Yes (Other)
  Sender: FDA-Public Use
  Company Number: DSA_59555_2012

PATIENT

DRUGS (5)
  1. FLUOROURACIL (FLUOROURACIL) [Suspect]
     Indication: GASTRIC CANCER
     Dosage: (400 mg/m2 (Every other week) Intravenous bolus)
  2. FLUOROURACIL (FLUOROURACIL) [Suspect]
     Indication: GASTRIC CANCER
     Dosage: (2400 mg/m2 (Every other week) Intravenous (not otherwise specified))
  3. OXALIPLATIN (OXALIPLATIN) [Suspect]
     Dosage: (85 mg/m2 (Every other week) Intravenous (not otherwise specified))
  4. LEUCOVORIN [Suspect]
     Dosage: (200 mg/m2 (Every other week) Intravenous (not otherwise specified))
  5. ANTINEOPLASTIC AGENTS [Concomitant]

REACTIONS (1)
  - Leukopenia [None]
